FAERS Safety Report 10043265 (Version 10)
Quarter: 2018Q1

REPORT INFORMATION
  Report Type: Report from Study
  Country: DE (occurrence: DE)
  Receive Date: 20140328
  Receipt Date: 20180123
  Transmission Date: 20180508
  Serious: Yes (Hospitalization, Other)
  Sender: FDA-Public Use
  Company Number: PHHY2014DE037074

PATIENT
  Age: 67 Year
  Sex: Male

DRUGS (17)
  1. EXFORGE HCT [Concomitant]
     Active Substance: AMLODIPINE BESYLATE\HYDROCHLOROTHIAZIDE\VALSARTAN
     Indication: HYPERTENSION
     Dosage: 25 MG, QD (DAILY)
     Route: 065
  2. JANUVIA [Concomitant]
     Active Substance: SITAGLIPTIN PHOSPHATE
     Indication: HYPERTRIGLYCERIDAEMIA
     Dosage: 100 MG, QD (PER DAY)
     Route: 065
  3. EINSALPHA [Concomitant]
     Indication: BONE DISORDER
     Dosage: 0.5 UG, QD (PER DAY)
     Route: 065
  4. ATORVASTATIN [Concomitant]
     Active Substance: ATORVASTATIN
     Indication: HYPERCHOLESTEROLAEMIA
     Dosage: 40 MG, QD (PER DAY)
     Route: 065
  5. ANTI KALIUM [Concomitant]
     Indication: HYPERKALAEMIA
     Dosage: UNK UNK, QD
     Route: 065
     Dates: start: 20131028
  6. RAMIPRIL ALMUS [Concomitant]
     Active Substance: RAMIPRIL
     Indication: HYPERTENSION
     Dosage: 15 MG, QD (DAILY)
     Route: 065
  7. METOPROLOL. [Concomitant]
     Active Substance: METOPROLOL
     Indication: HYPERTENSION
     Dosage: 200 MG, QD (PER DAY)
     Route: 065
  8. CLONISTADA [Concomitant]
     Indication: HYPERTENSION
     Dosage: 0.3 MG, QD (PER DAY)
     Route: 065
  9. TORASEMID [Concomitant]
     Active Substance: TORSEMIDE
     Indication: DEHYDRATION
     Dosage: 20 MG, QD (PER DAY)
     Route: 065
  10. CALCIUM ACETAT [Concomitant]
     Active Substance: CALCIUM ACETATE
     Indication: PROPHYLAXIS
     Dosage: 1425 MG, QD (PER DAY)
     Route: 065
  11. DEKRISTOL [Concomitant]
     Active Substance: CHOLECALCIFEROL
     Indication: VITAMIN D DEFICIENCY
     Dosage: 20000 IU, QD (PER DAY)
     Route: 065
  12. ALLOPURINOL. [Concomitant]
     Active Substance: ALLOPURINOL
     Indication: BLOOD URIC ACID DECREASED
     Dosage: 150 MG, QD (PER DAY)
     Route: 065
  13. ANTI KALIUM [Concomitant]
     Indication: RASH
  14. TASIGNA [Suspect]
     Active Substance: NILOTINIB
     Indication: CHRONIC MYELOID LEUKAEMIA
     Dosage: 600 MG, QD (PER DAY)
     Route: 048
     Dates: start: 20130509, end: 20140408
  15. ASPIRIN. [Concomitant]
     Active Substance: ASPIRIN
     Indication: HYPERTENSION
     Dosage: 100 OT, QD (PER DAY)
     Route: 065
  16. OMACOR [Concomitant]
     Active Substance: OMEGA-3-ACID ETHYL ESTERS
     Indication: HYPERTRIGLYCERIDAEMIA
     Dosage: 4000 MG, QD (PER DAY)
     Route: 065
  17. ENYGLID [Concomitant]
     Indication: TYPE 2 DIABETES MELLITUS
     Dosage: 6 MG, QD (PER DAY)
     Route: 065

REACTIONS (2)
  - Pneumonia [Recovered/Resolved]
  - Pleural effusion [Recovered/Resolved]

NARRATIVE: CASE EVENT DATE: 20140103
